FAERS Safety Report 6295320-2 (Version None)
Quarter: 2009Q3

REPORT INFORMATION
  Report Type: 
  Country: None (occurrence: None)
  Receive Date: 20090803
  Receipt Date: 20090729
  Transmission Date: 20100115
  Serious: Yes (Death)
  Sender: FDA-Public Use
  Company Number: JP-AVENTIS-200912125JP

PATIENT
  Age: 94 Year
  Sex: Female

DRUGS (2)
  1. GLYBURIDE [Suspect]
     Indication: DIABETES MELLITUS
     Route: 048
  2. UNKNOWN DRUG [Concomitant]

REACTIONS (1)
  - HYPOGLYCAEMIC ENCEPHALOPATHY [None]
